FAERS Safety Report 20176767 (Version 1)
Quarter: 2021Q4

REPORT INFORMATION
  Report Type: Spontaneous
  Country: BR (occurrence: BR)
  Receive Date: 20211213
  Receipt Date: 20211213
  Transmission Date: 20220304
  Serious: Yes (Other)
  Sender: FDA-Public Use
  Company Number: BR-NOVARTISPH-NVSC2021BR254466

PATIENT
  Age: 54 Year
  Sex: Female

DRUGS (2)
  1. TRAVATAN [Suspect]
     Active Substance: TRAVOPROST
     Indication: Ocular hypertension
     Dosage: 5 ML
     Route: 065
     Dates: start: 20211030, end: 20211102
  2. TRAVATAN [Suspect]
     Active Substance: TRAVOPROST
     Dosage: 2 DRP
     Route: 065
     Dates: start: 20211108

REACTIONS (4)
  - Glaucoma [Unknown]
  - Eye disorder [Unknown]
  - Hypersensitivity [Unknown]
  - Ocular hyperaemia [Not Recovered/Not Resolved]

NARRATIVE: CASE EVENT DATE: 20211109
